FAERS Safety Report 7714698-3 (Version None)
Quarter: 2011Q3

REPORT INFORMATION
  Report Type: 
  Country: None (occurrence: None)
  Receive Date: 20110829
  Receipt Date: 20110815
  Transmission Date: 20111222
  Serious: Yes (Hospitalization)
  Sender: FDA-Public Use
  Company Number: US-ALVOGEN-2011AL000049

PATIENT
  Sex: Female
  Weight: 49.9 kg

DRUGS (15)
  1. SEPTRA DS [Suspect]
     Indication: URINARY TRACT INFECTION
     Dates: start: 20110513, end: 20110513
  2. VITAMIN K TAB [Concomitant]
     Route: 048
     Dates: start: 20110513, end: 20110513
  3. FUROSEMIDE [Concomitant]
     Route: 048
  4. WARFARIN SODIUM [Suspect]
     Dosage: 7.5000 MG QD FOUR TIMES PER WEEK
     Route: 048
     Dates: start: 20110520
  5. DILTIAZEM [Concomitant]
     Route: 048
  6. DIGOXIN [Concomitant]
     Route: 048
  7. MACRODANTIN [Suspect]
     Indication: URINARY TRACT INFECTION
     Dates: start: 20110513, end: 20110514
  8. WARFARIN SODIUM [Suspect]
     Route: 048
     Dates: start: 20110501, end: 20110519
  9. WARFARIN SODIUM [Suspect]
     Dosage: 5 MG 3TIMES PER WEEK
     Route: 048
     Dates: start: 20110520
  10. OMEPRAZOLE [Concomitant]
     Route: 048
  11. POTASSIUM [Concomitant]
     Route: 048
  12. PHENAZOPYRIDINE HCL TAB [Suspect]
  13. WARFARIN SODIUM [Suspect]
     Indication: ATRIAL FIBRILLATION
     Route: 048
     Dates: start: 20110421, end: 20110512
  14. WARFARIN SODIUM [Suspect]
     Route: 048
     Dates: start: 20110523
  15. ATENOLOL [Concomitant]
     Route: 048

REACTIONS (18)
  - ASTHENIA [None]
  - ABDOMINAL DISCOMFORT [None]
  - WEIGHT DECREASED [None]
  - ANAEMIA [None]
  - INTERNATIONAL NORMALISED RATIO INCREASED [None]
  - ARRHYTHMIA [None]
  - CONTUSION [None]
  - GAIT DISTURBANCE [None]
  - ATROPHY [None]
  - PROTHROMBIN LEVEL INCREASED [None]
  - HAEMATURIA [None]
  - ECCHYMOSIS [None]
  - HYPONATRAEMIA [None]
  - PRESYNCOPE [None]
  - DYSPEPSIA [None]
  - NAUSEA [None]
  - VOMITING [None]
  - DECREASED APPETITE [None]
